FAERS Safety Report 9342895 (Version 1)
Quarter: 2013Q2

REPORT INFORMATION
  Report Type: Spontaneous
  Country: TR (occurrence: None)
  Receive Date: 20130607
  Receipt Date: 20130607
  Transmission Date: 20140414
  Serious: Yes (Other)
  Sender: FDA-Public Use
  Company Number: 7215274

PATIENT
  Age: 47 Year
  Sex: Female

DRUGS (3)
  1. SAIZEN [Suspect]
     Indication: GROWTH HORMONE DEFICIENCY
     Dosage: (0.5 MG, 1 IN 1 D)
     Route: 058
     Dates: start: 201110, end: 201204
  2. EUTHYROX [Suspect]
     Indication: HYPOTHYROIDISM
     Dosage: (75 MCG, 1 IN 1 D)
     Route: 048
     Dates: start: 2009
  3. CANDESARTAN CILEXETIL W/HYDROCHLOROTHIAZIDE [Suspect]
     Indication: HYPERTENSION
     Dosage: (12.5 MG, 1 IN 1 D)
     Route: 048
     Dates: start: 2009

REACTIONS (2)
  - Pituitary enlargement [None]
  - Neoplasm [None]
